FAERS Safety Report 7065059-4 (Version None)
Quarter: 2010Q4

REPORT INFORMATION
  Report Type: 
  Country: None (occurrence: None)
  Receive Date: 20101027
  Receipt Date: 19900320
  Transmission Date: 20110411
  Serious: Yes (Death, Life-Threatening, Hospitalization, Disabling)
  Sender: FDA-Public Use
  Company Number: CA-ROCHE-900800008001

PATIENT
  Sex: Male

DRUGS (2)
  1. VALIUM [Suspect]
     Route: 042
     Dates: start: 19900224, end: 19900224
  2. DILANTIN [Suspect]
     Route: 042
     Dates: start: 19900224, end: 19900224

REACTIONS (5)
  - BRAIN NEOPLASM [None]
  - CYANOSIS [None]
  - GANGRENE [None]
  - INJECTION SITE REACTION [None]
  - PAIN IN EXTREMITY [None]
